FAERS Safety Report 5225663-2 (Version None)
Quarter: 2007Q1

REPORT INFORMATION
  Report Type: 
  Country: None (occurrence: None)
  Receive Date: 20061201
  Receipt Date: 20061030
  Transmission Date: 20070707
  Serious: No
  Sender: FDA-Public Use
  Company Number: US200610005442

PATIENT
  Age: 78 Year
  Sex: Male

DRUGS (2)
  1. CYMBALTA [Suspect]
     Indication: DEPRESSION
     Dosage: 60 MG
     Dates: start: 20061001
  2. LAXATIVES [Concomitant]

REACTIONS (3)
  - DEPRESSION [None]
  - FEELING COLD [None]
  - HYPERHIDROSIS [None]
